FAERS Safety Report 17580972 (Version 2)
Quarter: 2020Q2

REPORT INFORMATION
  Report Type: Spontaneous
  Country: US (occurrence: US)
  Receive Date: 20200325
  Receipt Date: 20200430
  Transmission Date: 20200713
  Serious: No
  Sender: FDA-Public Use
  Company Number: US-ASTRAZENECA-2020SE39749

PATIENT
  Age: 83 Year
  Sex: Female
  Weight: 52.2 kg

DRUGS (16)
  1. GABAPENTIN. [Concomitant]
     Active Substance: GABAPENTIN
  2. SPIRIVA [Concomitant]
     Active Substance: TIOTROPIUM BROMIDE MONOHYDRATE
     Dates: start: 202003
  3. SYMBICORT [Suspect]
     Active Substance: BUDESONIDE\FORMOTEROL FUMARATE DIHYDRATE
     Indication: ASTHMA
     Dosage: 160MCG/4.5MCG, TWO PUFFS TWICE A DAY
     Route: 055
     Dates: start: 201911
  4. POTASSIUM CHLORIDE. [Concomitant]
     Active Substance: POTASSIUM CHLORIDE
  5. FOSAMAX [Concomitant]
     Active Substance: ALENDRONATE SODIUM
  6. FUROSEMIDE. [Concomitant]
     Active Substance: FUROSEMIDE
  7. SYMBICORT [Suspect]
     Active Substance: BUDESONIDE\FORMOTEROL FUMARATE DIHYDRATE
     Indication: CHRONIC OBSTRUCTIVE PULMONARY DISEASE
     Dosage: 160MCG/4.5MCG, TWO PUFFS TWICE A DAY
     Route: 055
     Dates: start: 201911
  8. CLOPIDOGRIL [Concomitant]
  9. AMLODIPINE [Concomitant]
     Active Substance: AMLODIPINE BESYLATE
     Indication: BLOOD PRESSURE ABNORMAL
  10. MELATONIN [Concomitant]
     Active Substance: MELATONIN
  11. MELOXICAM. [Concomitant]
     Active Substance: MELOXICAM
  12. PRAVASTATIN. [Concomitant]
     Active Substance: PRAVASTATIN
  13. HYDROCODONE [Concomitant]
     Active Substance: HYDROCODONE
     Indication: SPONDYLITIS
     Dosage: AS REQUIRED
  14. METOPROLOL TARTRATE. [Suspect]
     Active Substance: METOPROLOL TARTRATE
     Dosage: 25.0MG UNKNOWN
     Route: 048
  15. ALENDRONATE [Concomitant]
     Active Substance: ALENDRONATE SODIUM
  16. VITAMIN [Concomitant]
     Active Substance: VITAMINS

REACTIONS (4)
  - Muscle spasms [Unknown]
  - Device leakage [Unknown]
  - Intentional device misuse [Unknown]
  - Blood potassium increased [Unknown]

NARRATIVE: CASE EVENT DATE: 2020
